FAERS Safety Report 19238365 (Version 2)
Quarter: 2021Q2

REPORT INFORMATION
  Report Type: Report from Study
  Country: US (occurrence: US)
  Receive Date: 20210510
  Receipt Date: 20210625
  Transmission Date: 20210717
  Serious: Yes (Hospitalization)
  Sender: FDA-Public Use
  Company Number: US-GLAXOSMITHKLINE-US2021AMR015225

PATIENT
  Sex: Male

DRUGS (5)
  1. NIRAPARIB [Suspect]
     Active Substance: NIRAPARIB
     Dosage: 100 MG, QD
     Route: 048
  2. NIRAPARIB [Suspect]
     Active Substance: NIRAPARIB
     Indication: GASTROINTESTINAL MELANOMA
     Dosage: 200 MG, QD
     Dates: start: 202012
  3. NIRAPARIB [Suspect]
     Active Substance: NIRAPARIB
     Dosage: 200 MG, QD
     Dates: start: 20210126
  4. NIRAPARIB [Suspect]
     Active Substance: NIRAPARIB
     Dosage: 200 MG, QD
     Route: 048
  5. NIRAPARIB [Suspect]
     Active Substance: NIRAPARIB
     Dosage: 200 MG, QD

REACTIONS (6)
  - Illness [Not Recovered/Not Resolved]
  - Constipation [Not Recovered/Not Resolved]
  - Arthritis [Not Recovered/Not Resolved]
  - Product dose omission issue [Unknown]
  - Gout [Not Recovered/Not Resolved]
  - Off label use [Unknown]
